FAERS Safety Report 13193140 (Version 3)
Quarter: 2017Q2

REPORT INFORMATION
  Report Type: Spontaneous
  Country: US (occurrence: US)
  Receive Date: 20170207
  Receipt Date: 20170503
  Transmission Date: 20170830
  Serious: Yes (Other)
  Sender: FDA-Public Use
  Company Number: US-009507513-1702USA002233

PATIENT
  Age: 28 Year
  Sex: Female
  Weight: 102.95 kg

DRUGS (1)
  1. NEXPLANON [Suspect]
     Active Substance: ETONOGESTREL
     Indication: CONTRACEPTION
     Dosage: 1 IMPLANT, IMPLANTED IN UPPER LEFT ARM
     Route: 059
     Dates: start: 20170120, end: 20170125

REACTIONS (5)
  - Implant site discharge [Recovered/Resolved]
  - Cellulitis [Recovered/Resolved]
  - Implant site erythema [Recovered/Resolved]
  - Medication error [Unknown]
  - Implant site swelling [Recovered/Resolved]

NARRATIVE: CASE EVENT DATE: 20170120
